FAERS Safety Report 7877881 (Version 2)
Quarter: 2016Q2

REPORT INFORMATION
  Report Type: Spontaneous
  Country: US (occurrence: US)
  Receive Date: 20110330
  Receipt Date: 20160628
  Transmission Date: 20160815
  Serious: Yes (Hospitalization, Other)
  Sender: FDA-Public Use
  Company Number: US-ROCHE-767892

PATIENT
  Age: 62 Year
  Sex: Female

DRUGS (2)
  1. FOSAMAX [Suspect]
     Active Substance: ALENDRONATE SODIUM
     Indication: OSTEOPOROSIS
     Route: 048
     Dates: start: 1998, end: 200811
  2. BONIVA [Suspect]
     Active Substance: IBANDRONATE SODIUM
     Indication: OSTEOPOROSIS
     Route: 048
     Dates: start: 200811, end: 200902

REACTIONS (4)
  - Femur fracture [Unknown]
  - Depression [Unknown]
  - Lower limb fracture [Unknown]
  - Low turnover osteopathy [Unknown]

NARRATIVE: CASE EVENT DATE: 20090211
